FAERS Safety Report 7450561-3 (Version None)
Quarter: 2011Q2

REPORT INFORMATION
  Report Type: 
  Country: None (occurrence: None)
  Receive Date: 20110502
  Receipt Date: 20110419
  Transmission Date: 20111010
  Serious: Yes (Other)
  Sender: FDA-Public Use
  Company Number: AT-ASTRAZENECA-2011SE22705

PATIENT
  Age: 1 Month
  Sex: Female

DRUGS (6)
  1. THEOSPIREX [Concomitant]
  2. PROPOFOL [Suspect]
     Indication: INDUCTION OF ANAESTHESIA
     Route: 042
  3. NAROPIN [Suspect]
     Indication: PRODUCT USED FOR UNKNOWN INDICATION
     Route: 065
  4. MEXALEN [Concomitant]
     Dosage: 7.5 MG/KG PARACETAMOL PER ADMINISTRATION
  5. SEVOFLURANE [Suspect]
     Indication: PRODUCT USED FOR UNKNOWN INDICATION
  6. ULTIVA [Suspect]
     Indication: PRODUCT USED FOR UNKNOWN INDICATION

REACTIONS (4)
  - METABOLIC DISORDER [None]
  - OFF LABEL USE [None]
  - DEVELOPMENTAL DELAY [None]
  - CONVULSION [None]
